FAERS Safety Report 10290515 (Version 1)
Quarter: 2014Q3

REPORT INFORMATION
  Report Type: Spontaneous
  Country: NL (occurrence: None)
  Receive Date: 20140708
  Receipt Date: 20140708
  Transmission Date: 20150326
  Serious: Yes (Other)
  Sender: FDA-Public Use
  Company Number: 7303109

PATIENT
  Age: 59 Year
  Sex: Female

DRUGS (3)
  1. LEVOTHYROXINE [Suspect]
     Active Substance: LEVOTHYROXINE
     Indication: PRODUCT USED FOR UNKNOWN INDICATION
     Route: 048
     Dates: start: 20140108
  2. RENITEC [Concomitant]
     Active Substance: ENALAPRIL MALEATE
  3. THIAMAZOLE [Suspect]
     Active Substance: METHIMAZOLE
     Indication: PRODUCT USED FOR UNKNOWN INDICATION
     Route: 048
     Dates: start: 20140108

REACTIONS (12)
  - Contusion [None]
  - Blister [None]
  - Thyroid disorder [None]
  - Constipation [None]
  - Skin disorder [None]
  - Scratch [None]
  - Abdominal discomfort [None]
  - Pruritus [None]
  - Yellow skin [None]
  - Gastrointestinal disorder [None]
  - Liver disorder [None]
  - Erythema [None]

NARRATIVE: CASE EVENT DATE: 20140125
